FAERS Safety Report 7296348-6 (Version None)
Quarter: 2011Q1

REPORT INFORMATION
  Report Type: 
  Country: None (occurrence: None)
  Receive Date: 20110216
  Receipt Date: 20110208
  Transmission Date: 20110831
  Serious: Yes (Hospitalization)
  Sender: FDA-Public Use
  Company Number: JP-ASTRAZENECA-2011SE00499

PATIENT
  Age: 31108 Day
  Sex: Female

DRUGS (5)
  1. COKENZEN [Suspect]
     Indication: HYPERTENSION
     Dosage: 8/12.5, 1 DF EVERY DAY
     Route: 048
     Dates: end: 20101126
  2. TEMESTA [Concomitant]
     Indication: ANXIETY
     Route: 048
  3. ASPIRIN [Concomitant]
     Indication: TRANSIENT ISCHAEMIC ATTACK
     Route: 048
  4. DAFALGAN [Concomitant]
     Indication: PAIN
     Dosage: 500 MG X 2 THREE TIMES DAILY
     Route: 048
  5. PAROXETINE [Interacting]
     Indication: DEPRESSION
     Route: 048
     Dates: start: 20101123, end: 20101125

REACTIONS (3)
  - HYPOTENSION [None]
  - DRUG INTERACTION [None]
  - HYPONATRAEMIA [None]
